FAERS Safety Report 19892745 (Version 1)
Quarter: 2021Q3

REPORT INFORMATION
  Report Type: Spontaneous
  Country: US (occurrence: US)
  Receive Date: 20210929
  Receipt Date: 20210929
  Transmission Date: 20211014
  Serious: No
  Sender: FDA-Public Use
  Company Number: US-ORGANON-O2109USA002157

PATIENT
  Age: 24 Year

DRUGS (1)
  1. NEXPLANON [Suspect]
     Active Substance: ETONOGESTREL
     Dosage: 1 DOSAGE FORM, LEFT ARM (NON?DOMINANT ARM)
     Route: 059
     Dates: start: 201807, end: 20210923

REACTIONS (3)
  - Incorrect product administration duration [Unknown]
  - Complication associated with device [Recovered/Resolved]
  - No adverse event [Unknown]
